FAERS Safety Report 4490879-X (Version None)
Quarter: 2004Q4

REPORT INFORMATION
  Report Type: 
  Country: None (occurrence: None)
  Receive Date: 20041027
  Receipt Date: 20041018
  Transmission Date: 20050328
  Serious: Yes (Hospitalization)
  Sender: FDA-Public Use
  Company Number: 2004-10-1112

PATIENT
  Age: 39 Year
  Sex: Male

DRUGS (1)
  1. PEG-INTRON [Suspect]
     Indication: HEPATITIS C
     Dosage: 100 MCG QWK SUBCUTANEOUS
     Route: 058
     Dates: start: 20040909

REACTIONS (3)
  - CHEST PAIN [None]
  - CONFUSIONAL STATE [None]
  - PYREXIA [None]
